FAERS Safety Report 16425492 (Version 6)
Quarter: 2019Q3

REPORT INFORMATION
  Report Type: Spontaneous
  Country: US (occurrence: US)
  Receive Date: 20190613
  Receipt Date: 20190710
  Transmission Date: 20191004
  Serious: Yes (Other)
  Sender: FDA-Public Use
  Company Number: US-PFIZER INC-2019245640

PATIENT
  Age: 77 Year
  Sex: Male
  Weight: 114 kg

DRUGS (2)
  1. CELECOXIB. [Suspect]
     Active Substance: CELECOXIB
     Indication: ARTHRITIS
     Dosage: 200 MG, 1X/DAY
     Dates: start: 2019, end: 2019
  2. CELECOXIB. [Suspect]
     Active Substance: CELECOXIB
     Indication: NEUROPATHY PERIPHERAL

REACTIONS (7)
  - Cardiac arrest [Unknown]
  - Blood pressure increased [Recovered/Resolved]
  - Swelling [Unknown]
  - Disease recurrence [Unknown]
  - Peripheral swelling [Recovered/Resolved]
  - Heart valve incompetence [Unknown]
  - Pain [Unknown]

NARRATIVE: CASE EVENT DATE: 2019
